FAERS Safety Report 5252859-6 (Version None)
Quarter: 2007Q1

REPORT INFORMATION
  Report Type: 
  Country: None (occurrence: None)
  Receive Date: 20070227
  Receipt Date: 20070212
  Transmission Date: 20070707
  Serious: Yes (Hospitalization)
  Sender: FDA-Public Use
  Company Number: MEDI-0005432

PATIENT
  Age: 7 Month
  Sex: 0

DRUGS (2)
  1. SYNAGIS [Suspect]
     Indication: ANTIVIRAL PROPHYLAXIS
     Dosage: 40 MG, INTRAMUSCULAR, 33 MG, INTRAMUSCULAR
     Route: 030
     Dates: start: 20060302, end: 20060323
  2. SYNAGIS [Suspect]
     Indication: ANTIVIRAL PROPHYLAXIS
     Dosage: 40 MG, INTRAMUSCULAR, 33 MG, INTRAMUSCULAR
     Route: 030
     Dates: start: 20060302

REACTIONS (1)
  - BRONCHIOLITIS [None]
